FAERS Safety Report 6662553-2 (Version None)
Quarter: 2010Q1

REPORT INFORMATION
  Report Type: 
  Country: None (occurrence: None)
  Receive Date: 20100329
  Receipt Date: 20100316
  Transmission Date: 20100710
  Serious: Yes (Other)
  Sender: FDA-Public Use
  Company Number: B0642857A

PATIENT
  Age: 5 Month
  Sex: Female

DRUGS (5)
  1. MELPHALAN (FORMULATION UNKNOWN) (GENERIC) (MELPHALAN) [Suspect]
     Indication: CARTILAGE-HAIR HYPOPLASIA
  2. FLUDARABINE PHOSPHATE [Suspect]
     Indication: CARTILAGE-HAIR HYPOPLASIA
  3. THIOTEPA [Suspect]
     Indication: CARTILAGE-HAIR HYPOPLASIA
  4. MYCOPHENOLATE MOFETIL [Suspect]
  5. CYCLOSPORINE [Concomitant]

REACTIONS (12)
  - AMAUROSIS [None]
  - APLASIA [None]
  - CONDITION AGGRAVATED [None]
  - CYTOMEGALOVIRUS CHORIORETINITIS [None]
  - DRUG TOXICITY [None]
  - GASTROINTESTINAL INFLAMMATION [None]
  - MUSCLE SPASTICITY [None]
  - SEPSIS [None]
  - SKIN TOXICITY [None]
  - STOMATITIS [None]
  - UVEITIS [None]
  - VITRITIS [None]
